FAERS Safety Report 5088761-2 (Version None)
Quarter: 2006Q3

REPORT INFORMATION
  Report Type: 
  Country: None (occurrence: None)
  Receive Date: 20060825
  Receipt Date: 20060824
  Transmission Date: 20061208
  Serious: Yes (Other)
  Sender: FDA-Public Use
  Company Number: DE-GLAXOSMITHKLINE-D0050692A

PATIENT
  Sex: Male

DRUGS (1)
  1. ZYBAN [Suspect]
     Route: 048
     Dates: start: 20060101

REACTIONS (3)
  - ACQUIRED DIAPHRAGMATIC EVENTRATION [None]
  - DYSPNOEA [None]
  - PHRENIC NERVE PARALYSIS [None]
